FAERS Safety Report 22107533 (Version 1)
Quarter: 2023Q1

REPORT INFORMATION
  Report Type: Spontaneous
  Country: FR (occurrence: FR)
  Receive Date: 20230317
  Receipt Date: 20230317
  Transmission Date: 20230417
  Serious: Yes (Life-Threatening, Hospitalization, Other)
  Sender: FDA-Public Use
  Company Number: FR-MACLEODS PHARMACEUTICALS US LTD-MAC2023040209

PATIENT

DRUGS (8)
  1. LIDOCAINE [Suspect]
     Active Substance: LIDOCAINE
     Indication: Local anaesthesia
     Dosage: 2 %, BOLUS
     Route: 065
  2. EPINEPHRINE [Suspect]
     Active Substance: EPINEPHRINE
     Indication: Local anaesthesia
     Dosage: 60 MILLIGRAM
     Route: 065
  3. ROPIVACAINE [Suspect]
     Active Substance: ROPIVACAINE
     Indication: Epidural analgesia
     Dosage: UNK (FIRST BOLUS. 1 MG/ML)
     Route: 008
  4. ROPIVACAINE [Suspect]
     Active Substance: ROPIVACAINE
     Dosage: 73 MILLIGRAM (STRENGTH: 10 MG/ML; 73 MG/5 HRS BOLUS DOSE1ST BOLUS 8 MG, 3RD BOLUS {5 MG + MAXI)MUM 1
     Route: 008
  5. ROPIVACAINE [Suspect]
     Active Substance: ROPIVACAINE
     Dosage: 8 ML, (STRENGTH: 10 MG/ML, 73 MG/5 H BOLUS DOSE 1ST BOLUS 8 MG, 3RD BOLUS {5 MG + MAXIMUM 100 MG
     Route: 008
  6. SUFENTANIL [Suspect]
     Active Substance: SUFENTANIL
     Indication: Analgesic therapy
     Dosage: UNK, STRENGTH 0.25 UG/ML
     Route: 008
  7. Ampicilin/clavulanic acid [Concomitant]
     Indication: Prophylaxis
     Dosage: UNK
     Route: 065
  8. OXYTOCIN [Concomitant]
     Active Substance: OXYTOCIN
     Indication: Labour induction
     Dosage: UNK
     Route: 042

REACTIONS (6)
  - Local anaesthetic systemic toxicity [Recovered/Resolved]
  - Generalised tonic-clonic seizure [Recovered/Resolved]
  - Loss of consciousness [Recovered/Resolved]
  - Cardiac arrest [Recovered/Resolved]
  - Incorrect dose administered [Recovered/Resolved]
  - Maternal exposure during pregnancy [Unknown]
